FAERS Safety Report 9820747 (Version 1)
Quarter: 2013Q4

REPORT INFORMATION
  Report Type: Spontaneous
  Country: US (occurrence: None)
  Receive Date: 20131028
  Receipt Date: 20131028
  Transmission Date: 20140711
  Serious: Yes (Other)
  Sender: FDA-Public Use
  Company Number: 2013US001394

PATIENT
  Age: 52 Year
  Sex: Female
  Weight: 89 kg

DRUGS (6)
  1. ICLUSIG [Suspect]
     Indication: CHRONIC MYELOID LEUKAEMIA
     Route: 048
     Dates: start: 20130310, end: 20130319
  2. PHENERGAN (PROMETHAZINE) [Concomitant]
  3. LASIX (FUROSEMIDE) [Concomitant]
  4. MORPHINE SULFATE (MORPHINE SULFATE) INJECTION [Concomitant]
  5. ZOFRAN (ONDANSETRON) [Concomitant]
  6. LEXAPRO (ESCITALOPRAM OXALATE) [Concomitant]

REACTIONS (4)
  - Splenomegaly [None]
  - White blood cell count increased [None]
  - Pruritus generalised [None]
  - Vomiting [None]
